FAERS Safety Report 4875032-X (Version None)
Quarter: 2006Q1

REPORT INFORMATION
  Report Type: 
  Country: None (occurrence: None)
  Receive Date: 20060105
  Receipt Date: 20051222
  Transmission Date: 20060701
  Serious: Yes (Other)
  Sender: FDA-Public Use
  Company Number: 340021K05USA

PATIENT
  Sex: Female

DRUGS (3)
  1. OVIDREL [Suspect]
     Indication: INFERTILITY FEMALE
     Dates: start: 20050101
  2. CRINONE [Suspect]
     Indication: INFERTILITY FEMALE
  3. CLOMIPHENE CITRATE [Suspect]
     Indication: INFERTILITY FEMALE
     Dosage: 50 MG
     Dates: start: 20050101

REACTIONS (3)
  - ABORTION [None]
  - BENIGN HYDATIDIFORM MOLE [None]
  - MULTIPLE PREGNANCY [None]
